FAERS Safety Report 5128399-1 (Version None)
Quarter: 2006Q4

REPORT INFORMATION
  Report Type: 
  Country: None (occurrence: None)
  Receive Date: 20061011
  Receipt Date: 20060921
  Transmission Date: 20070319
  Serious: Yes (Other)
  Sender: FDA-Public Use
  Company Number: US200512004201

PATIENT
  Age: 34 Year
  Sex: Male

DRUGS (5)
  1. STRATTERA [Suspect]
     Indication: ATTENTION DEFICIT/HYPERACTIVITY DISORDER
     Dosage: 40 MG, DAILY (1/D); SEE IMAGE
  2. VITAMIN E (VITAMIN E UNKNOWN MANUFACTURER) [Concomitant]
  3. FLAXSEED OIL (LINSEED OIL) [Concomitant]
  4. MULTIVITAMINS (ASCORBIC ACID, ERGOCALCIFEROL, FOLIC ACID, NICOTINAMIDE [Concomitant]
  5. FISH OIL (FISH OIL) [Concomitant]

REACTIONS (15)
  - ABNORMAL BEHAVIOUR [None]
  - AGGRESSION [None]
  - ANOREXIA [None]
  - APATHY [None]
  - BLOOD GLUCOSE INCREASED [None]
  - BLOOD TESTOSTERONE DECREASED [None]
  - BLOOD TESTOSTERONE INCREASED [None]
  - EMOTIONAL DISORDER [None]
  - FEELING HOT [None]
  - GLUCOSE TOLERANCE IMPAIRED [None]
  - INTENTIONAL OVERDOSE [None]
  - PRESCRIBED OVERDOSE [None]
  - RAPID EYE MOVEMENTS SLEEP ABNORMAL [None]
  - SELF ESTEEM INFLATED [None]
  - THERAPEUTIC RESPONSE UNEXPECTED [None]
